FAERS Safety Report 5000935-5 (Version None)
Quarter: 2006Q2

REPORT INFORMATION
  Report Type: 
  Country: None (occurrence: None)
  Receive Date: 20060512
  Receipt Date: 20060503
  Transmission Date: 20061013
  Serious: Yes (Hospitalization)
  Sender: FDA-Public Use
  Company Number: FR-ROCHE-446950

PATIENT
  Age: 85 Year
  Sex: Male

DRUGS (5)
  1. ROCEPHIN [Suspect]
     Route: 058
     Dates: start: 20060106, end: 20060224
  2. ROCEPHIN [Suspect]
     Route: 058
     Dates: start: 20060225, end: 20060320
  3. BACTRIM DS [Suspect]
     Route: 048
     Dates: start: 20060217, end: 20060219
  4. BACTRIM DS [Suspect]
     Route: 048
     Dates: start: 20060220, end: 20060223
  5. MIXTARD 30 HM [Concomitant]
     Indication: DIABETES MELLITUS
     Dosage: REPORTED AS: MIXTARD 30.
     Route: 058
     Dates: start: 19950615

REACTIONS (2)
  - CONFUSIONAL STATE [None]
  - HALLUCINATION [None]
